FAERS Safety Report 7966115-6 (Version None)
Quarter: 2011Q4

REPORT INFORMATION
  Report Type: 
  Country: None (occurrence: None)
  Receive Date: 20111208
  Receipt Date: 20111129
  Transmission Date: 20120403
  Serious: Yes (Other)
  Sender: FDA-Public Use
  Company Number: PHHY2011KR104511

PATIENT
  Age: 67 Year
  Sex: Female

DRUGS (3)
  1. PREDNISOLONE [Concomitant]
     Indication: RHEUMATOID ARTHRITIS
     Dosage: UNK
  2. LEFLUNOMIDE [Suspect]
     Indication: RHEUMATOID ARTHRITIS
     Dosage: 20 MG, UNK
  3. METHOTREXATE [Concomitant]
     Indication: RHEUMATOID ARTHRITIS
     Dosage: 10 MG/WEEK

REACTIONS (9)
  - RHEUMATOID NODULE [None]
  - LEUKOCYTOSIS [None]
  - TENDERNESS [None]
  - OEDEMA PERIPHERAL [None]
  - ERYTHEMA [None]
  - GRANULOMA [None]
  - NORMOCHROMIC NORMOCYTIC ANAEMIA [None]
  - MASS [None]
  - PAIN IN EXTREMITY [None]
